FAERS Safety Report 5292411-X (Version None)
Quarter: 2007Q2

REPORT INFORMATION
  Report Type: 
  Country: None (occurrence: None)
  Receive Date: 20070410
  Receipt Date: 20070330
  Transmission Date: 20071010
  Serious: Yes (Other)
  Sender: FDA-Public Use
  Company Number: US-PFIZER INC-2006066743

PATIENT
  Sex: Female

DRUGS (8)
  1. NEURONTIN [Suspect]
     Indication: NECK PAIN
  2. NEURONTIN [Suspect]
     Indication: BACK PAIN
  3. HYDROCODONE [Suspect]
  4. TYLENOL [Suspect]
  5. AMITRIPTYLINE HCL [Suspect]
  6. FLUOXETINE [Concomitant]
  7. BEXTRA [Concomitant]
  8. CYCLOBENZAPRINE HCL [Concomitant]

REACTIONS (6)
  - DRUG INEFFECTIVE [None]
  - INTENTIONAL OVERDOSE [None]
  - LOSS OF CONSCIOUSNESS [None]
  - PNEUMONIA [None]
  - SUICIDAL IDEATION [None]
  - SUICIDE ATTEMPT [None]
